FAERS Safety Report 16058782 (Version 1)
Quarter: 2019Q1

REPORT INFORMATION
  Report Type: Spontaneous
  Country: PK (occurrence: PK)
  Receive Date: 20190311
  Receipt Date: 20190311
  Transmission Date: 20190418
  Serious: Yes (Death, Other)
  Sender: FDA-Public Use
  Company Number: PK-BAYER-2019-049463

PATIENT
  Sex: Female

DRUGS (1)
  1. ULTRAVIST [Suspect]
     Active Substance: IOPROMIDE
     Indication: COMPUTERISED TOMOGRAM THORAX
     Dosage: UNK, ONCE
     Route: 042
     Dates: start: 20190227, end: 20190227

REACTIONS (4)
  - Eye haemorrhage [None]
  - Death [Fatal]
  - Chest discomfort [Fatal]
  - Mouth haemorrhage [None]

NARRATIVE: CASE EVENT DATE: 20190227
